FAERS Safety Report 21075866 (Version 5)
Quarter: 2022Q4

REPORT INFORMATION
  Report Type: Report from Study
  Country: CN (occurrence: CN)
  Receive Date: 20220713
  Receipt Date: 20221006
  Transmission Date: 20230112
  Serious: Yes (Hospitalization)
  Sender: FDA-Public Use
  Company Number: CN-PFIZER INC-PV202200016019

PATIENT
  Age: 49 Year
  Sex: Female
  Weight: 52.5 kg

DRUGS (12)
  1. EPIRUBICIN HYDROCHLORIDE [Suspect]
     Active Substance: EPIRUBICIN HYDROCHLORIDE
     Indication: Triple negative breast cancer
     Dosage: 72 MG/M2, Q2W (EVERY 14 DAYS ? 3 DAYS), IVGTT
     Route: 041
     Dates: start: 20220301, end: 20220419
  2. INVESTIGATIONAL PRODUCT [Suspect]
     Active Substance: INVESTIGATIONAL PRODUCT
     Indication: Triple negative breast cancer
     Dosage: Q2W (EVERY 14 DAYS ? 3 DAYS), IVGTT
     Route: 041
     Dates: start: 20211030, end: 20220601
  3. CYCLOPHOSPHAMIDE [Suspect]
     Active Substance: CYCLOPHOSPHAMIDE
     Indication: Triple negative breast cancer
     Dosage: 400 MG/M2, Q2W (EVERY 14 DAYS ? 3 DAYS), IVGTT
     Route: 041
     Dates: start: 20220301, end: 20220419
  4. PACLITAXEL [Suspect]
     Active Substance: PACLITAXEL
     Indication: Triple negative breast cancer
     Dosage: 100 MG/M2, D1, D8, D15 DOSING (DOSING 3 WEEKS, FOLLOWED BY ONE-WEEK INTERVAL)), IVGTT
     Route: 041
     Dates: start: 20211030, end: 20220214
  5. CARBOPLATIN [Suspect]
     Active Substance: CARBOPLATIN
     Indication: Triple negative breast cancer
     Dosage: AUC1.5, D1, D8, D15 DOSING (DOSING 3 WEEKS, FOLLOWED BY A ONE-WEEK INTERVAL), IVGTT
     Route: 041
     Dates: start: 20211030, end: 20220214
  6. PANTOPRAZOLE SODIUM [Concomitant]
     Active Substance: PANTOPRAZOLE SODIUM
     Indication: Prophylaxis
     Dosage: 40 MG, ENTERIC-COATED TABLET, QD
     Route: 048
     Dates: start: 20220313, end: 20220620
  7. CELECOXIB [Concomitant]
     Active Substance: CELECOXIB
     Indication: Arthritis
     Dosage: 200 MG, 2X/DAY
     Route: 048
     Dates: start: 20220512, end: 20220525
  8. POVIDONE [Concomitant]
     Active Substance: POVIDONE
     Indication: Infection prophylaxis
     Dosage: IODINE LOTION, 0.1 ML, QD
     Route: 061
     Dates: start: 20220512, end: 20220630
  9. HERBALS [Concomitant]
     Active Substance: HERBALS
     Indication: Arthritis
     Dosage: 60 CAPSULES, 2X/DAY, PILLS
     Route: 048
     Dates: start: 20220512, end: 20220609
  10. QU FENG ZHI TONG [Concomitant]
     Indication: Arthritis
     Dosage: JIAONANG, 1.8 G, 2X/DAY
     Route: 048
     Dates: start: 20220518, end: 20220607
  11. DIOSMIN [Concomitant]
     Active Substance: DIOSMIN
     Indication: Arthritis
     Dosage: 0.9 G, 2X/DAY
     Route: 048
     Dates: start: 20220518, end: 20220605
  12. ETORICOXIB [Concomitant]
     Active Substance: ETORICOXIB
     Indication: Arthritis
     Dosage: 60 MG, ONCE
     Route: 048
     Dates: start: 20220518, end: 20220604

REACTIONS (2)
  - Blood bilirubin increased [Recovered/Resolved]
  - Aspartate aminotransferase increased [Recovered/Resolved]

NARRATIVE: CASE EVENT DATE: 20220612
